FAERS Safety Report 18306225 (Version 1)
Quarter: 2020Q3

REPORT INFORMATION
  Report Type: Spontaneous
  Country: DE (occurrence: DE)
  Receive Date: 20200924
  Receipt Date: 20200924
  Transmission Date: 20201103
  Serious: Yes (Other)
  Sender: FDA-Public Use
  Company Number: DE-TEVA-2020-DE-1829988

PATIENT

DRUGS (4)
  1. THIOTEPA. [Suspect]
     Active Substance: THIOTEPA
     Indication: DRUG THERAPY
     Dosage: ON DAYS ?8 AND ?7
     Route: 065
  2. TREOSULFAN [Suspect]
     Active Substance: TREOSULFAN
     Indication: DRUG THERAPY
     Dosage: 14 G/M2 ON DAYS ?5 TO ?3
     Route: 065
  3. ATG?FRESENIUS [Suspect]
     Active Substance: LAPINE T-LYMPHOCYTE IMMUNE GLOBULIN
     Indication: DRUG THERAPY
     Dosage: ON DAYS ?10 TO ?8
     Route: 065
  4. FLUDARABINE [Suspect]
     Active Substance: FLUDARABINE PHOSPHATE
     Indication: DRUG THERAPY
     Dosage: ON DAYS ?7 TO ?4
     Route: 065

REACTIONS (2)
  - Muscle spasms [Recovered/Resolved]
  - Hemiplegia [Recovered/Resolved]
